FAERS Safety Report 18097927 (Version 1)
Quarter: 2020Q3

REPORT INFORMATION
  Report Type: Report from Study
  Country: CA (occurrence: CA)
  Receive Date: 20200731
  Receipt Date: 20200731
  Transmission Date: 20201103
  Serious: Yes (Other)
  Sender: FDA-Public Use
  Company Number: CA-TEVA-2020-CA-1807012

PATIENT
  Age: 50 Year
  Sex: Male

DRUGS (6)
  1. COSENTYX [Suspect]
     Active Substance: SECUKINUMAB
     Indication: PSORIASIS
     Route: 058
  2. SORIATANE [Concomitant]
     Active Substance: ACITRETIN
     Route: 048
  3. COSENTYX [Suspect]
     Active Substance: SECUKINUMAB
     Route: 058
  4. CLOBETASOL PROPIONATE. [Concomitant]
     Active Substance: CLOBETASOL PROPIONATE
     Route: 061
  5. METHOTREXATE. [Suspect]
     Active Substance: METHOTREXATE
     Indication: PRODUCT USED FOR UNKNOWN INDICATION
     Route: 065
  6. SYNTHROID [Concomitant]
     Active Substance: LEVOTHYROXINE SODIUM
     Route: 065

REACTIONS (4)
  - Swelling [Not Recovered/Not Resolved]
  - Abscess [Not Recovered/Not Resolved]
  - Psoriasis [Not Recovered/Not Resolved]
  - Tooth abscess [Not Recovered/Not Resolved]
